FAERS Safety Report 16826233 (Version 1)
Quarter: 2019Q3

REPORT INFORMATION
  Report Type: Spontaneous
  Country: US (occurrence: US)
  Receive Date: 20190729
  Receipt Date: 20190729
  Transmission Date: 20191005
  Serious: Yes (Disabling, Other)
  Sender: FDA-Public Use
  Company Number: None

PATIENT
  Age: 51 Year
  Sex: Female
  Weight: 45.36 kg

DRUGS (1)
  1. IC LEVOFLOXACIN 750MG TABLET [Suspect]
     Active Substance: LEVOFLOXACIN
     Route: 048
     Dates: start: 20161103

REACTIONS (12)
  - Arthralgia [None]
  - Feeding disorder [None]
  - Drug hypersensitivity [None]
  - Fatigue [None]
  - Insomnia [None]
  - Pain [None]
  - Drug ineffective [None]
  - Anxiety [None]
  - Rash [None]
  - Myalgia [None]
  - Dizziness postural [None]
  - Weight decreased [None]

NARRATIVE: CASE EVENT DATE: 20161103
